FAERS Safety Report 25255530 (Version 1)
Quarter: 2025Q2

REPORT INFORMATION
  Report Type: Spontaneous
  Country: US (occurrence: None)
  Receive Date: 20250429
  Receipt Date: 20250429
  Transmission Date: 20250716
  Serious: Yes (unspecified)
  Sender: FDA-CTU
  Company Number: None

PATIENT
  Age: 55 Year
  Sex: Male
  Weight: 81.6 kg

DRUGS (1)
  1. CEFTRIAXONE [Suspect]
     Active Substance: CEFTRIAXONE
     Indication: Urinary tract infection
     Dates: start: 20250404, end: 20250405

REACTIONS (4)
  - Injection related reaction [None]
  - Flushing [None]
  - Pharyngeal swelling [None]
  - Anaphylactic reaction [None]

NARRATIVE: CASE EVENT DATE: 20250405
